FAERS Safety Report 19081698 (Version 8)
Quarter: 2025Q2

REPORT INFORMATION
  Report Type: Spontaneous
  Country: DE (occurrence: DE)
  Receive Date: 20210401
  Receipt Date: 20250417
  Transmission Date: 20250716
  Serious: Yes (Hospitalization, Other)
  Sender: BIOGEN
  Company Number: DE-BIOGEN-2020BI00935695

PATIENT
  Sex: Female
  Weight: 60 kg

DRUGS (2)
  1. SPINRAZA [Suspect]
     Active Substance: NUSINERSEN
     Indication: Spinal muscular atrophy
     Route: 050
     Dates: start: 20190222
  2. SPINRAZA [Suspect]
     Active Substance: NUSINERSEN
     Route: 050
     Dates: start: 20190222

REACTIONS (20)
  - Cholelithiasis [Recovered/Resolved]
  - Delayed recovery from anaesthesia [Recovered/Resolved]
  - Neck pain [Recovered/Resolved]
  - General physical health deterioration [Unknown]
  - Asthenia [Recovered/Resolved]
  - Dizziness [Not Recovered/Not Resolved]
  - Blood bilirubin increased [Recovered/Resolved]
  - Drug effect less than expected [Recovered/Resolved]
  - Blood potassium decreased [Unknown]
  - Protein total decreased [Unknown]
  - Haemoglobin decreased [Unknown]
  - White blood cell count decreased [Unknown]
  - Procedural anxiety [Unknown]
  - Toothache [Recovered/Resolved]
  - Loss of therapeutic response [Not Recovered/Not Resolved]
  - Scoliosis [Not Recovered/Not Resolved]
  - Gastritis [Not Recovered/Not Resolved]
  - Oxygen saturation decreased [Recovered/Resolved]
  - Fatigue [Unknown]
  - Stress [Not Recovered/Not Resolved]

NARRATIVE: CASE EVENT DATE: 20190101
